FAERS Safety Report 23655759 (Version 1)
Quarter: 2024Q1

REPORT INFORMATION
  Report Type: Report from Study
  Country: US (occurrence: US)
  Receive Date: 20240321
  Receipt Date: 20240321
  Transmission Date: 20240409
  Serious: Yes (Other)
  Sender: FDA-Public Use
  Company Number: US-ABBVIE-5683469

PATIENT
  Age: 35 Year
  Sex: Male

DRUGS (6)
  1. SKYRIZI [Suspect]
     Active Substance: RISANKIZUMAB-RZAA
     Indication: Crohn^s disease
     Dosage: 3RD OBI
     Route: 058
     Dates: start: 20240314
  2. SKYRIZI [Suspect]
     Active Substance: RISANKIZUMAB-RZAA
     Dosage: 2ND OBI
     Route: 058
  3. SKYRIZI [Suspect]
     Active Substance: RISANKIZUMAB-RZAA
     Dosage: 1ST OBI
     Route: 058
  4. SKYRIZI [Suspect]
     Active Substance: RISANKIZUMAB-RZAA
     Indication: Crohn^s disease
     Dosage: 1ST INFUSION
     Route: 042
     Dates: start: 20230801
  5. SKYRIZI [Suspect]
     Active Substance: RISANKIZUMAB-RZAA
     Indication: Crohn^s disease
     Dosage: 2ND INFUSION
     Route: 042
     Dates: start: 2023, end: 2023
  6. SKYRIZI [Suspect]
     Active Substance: RISANKIZUMAB-RZAA
     Indication: Crohn^s disease
     Dosage: 3RD INFUSION
     Route: 042
     Dates: start: 20231003

REACTIONS (3)
  - Loss of consciousness [Recovered/Resolved]
  - Presyncope [Unknown]
  - Presyncope [Recovered/Resolved]

NARRATIVE: CASE EVENT DATE: 20231001
